FAERS Safety Report 14825982 (Version 1)
Quarter: 2018Q2

REPORT INFORMATION
  Report Type: Spontaneous
  Country: US (occurrence: US)
  Receive Date: 20180417
  Receipt Date: 20180417
  Transmission Date: 20180711
  Serious: Yes (Life-Threatening)
  Sender: FDA-Public Use
  Company Number: None

PATIENT
  Age: 58 Year
  Sex: Female
  Weight: 58.5 kg

DRUGS (1)
  1. ADDERALL XR [Suspect]
     Active Substance: AMPHETAMINE ASPARTATE\AMPHETAMINE SULFATE\DEXTROAMPHETAMINE SACCHARATE\DEXTROAMPHETAMINE SULFATE
     Route: 048
     Dates: start: 20180323, end: 20180417

REACTIONS (7)
  - Drug ineffective [None]
  - Feeling abnormal [None]
  - Somnolence [None]
  - Emotional distress [None]
  - Headache [None]
  - Fatigue [None]
  - Suicidal ideation [None]

NARRATIVE: CASE EVENT DATE: 20180417
